FAERS Safety Report 8451031-6 (Version None)
Quarter: 2012Q2

REPORT INFORMATION
  Report Type: 
  Country: None (occurrence: None)
  Receive Date: 20120613
  Receipt Date: 20120528
  Transmission Date: 20120825
  Serious: Yes (Hospitalization, Other)
  Sender: FDA-Public Use
  Company Number: 2012VX002569

PATIENT
  Age: 10 Year
  Sex: Female

DRUGS (3)
  1. VINCRISTINE [Suspect]
     Indication: HEPATOBLASTOMA
  2. FLUOROURACIL [Suspect]
     Indication: HEPATOBLASTOMA
  3. CISPLATIN [Suspect]
     Indication: HEPATOBLASTOMA

REACTIONS (4)
  - ILEUS [None]
  - DYSARTHRIA [None]
  - HYPERTENSION [None]
  - NEUROTOXICITY [None]
